FAERS Safety Report 9786929 (Version 4)
Quarter: 2014Q1

REPORT INFORMATION
  Report Type: Report from Study
  Country: US (occurrence: US)
  Receive Date: 20131227
  Receipt Date: 20140221
  Transmission Date: 20141002
  Serious: Yes (Hospitalization)
  Sender: FDA-Public Use
  Company Number: US-ACTELION-A-US2013-91516

PATIENT
  Age: 52 Year
  Sex: Female

DRUGS (3)
  1. VELETRI [Suspect]
     Indication: PULMONARY ARTERIAL HYPERTENSION
     Dosage: 42 NG/KG, PER MIN
     Route: 042
     Dates: start: 20111201
  2. VELETRI [Suspect]
     Dosage: UNK
     Route: 042
  3. SILDENAFIL [Concomitant]

REACTIONS (7)
  - Weight increased [Unknown]
  - Anaemia [Unknown]
  - Catheter site infection [Unknown]
  - Staphylococcal infection [Unknown]
  - Dyspnoea [Unknown]
  - Fluid retention [Unknown]
  - Catheter site discharge [Unknown]
